FAERS Safety Report 13668342 (Version 1)
Quarter: 2017Q2

REPORT INFORMATION
  Report Type: Spontaneous
  Country: DE (occurrence: DE)
  Receive Date: 20170620
  Receipt Date: 20170620
  Transmission Date: 20170830
  Serious: Yes (Hospitalization, Other)
  Sender: FDA-Public Use
  Company Number: DE-ACCORD-052391

PATIENT
  Age: 65 Year
  Sex: Female

DRUGS (5)
  1. QUETIAPINE. [Interacting]
     Active Substance: QUETIAPINE
     Route: 048
     Dates: start: 20160727, end: 20160807
  2. MIRTAZAPINE. [Interacting]
     Active Substance: MIRTAZAPINE
     Route: 048
     Dates: start: 20160907, end: 20160910
  3. MIRTAZAPINE. [Interacting]
     Active Substance: MIRTAZAPINE
     Route: 048
     Dates: start: 20160828, end: 20160906
  4. QUETIAPINE. [Suspect]
     Active Substance: QUETIAPINE
     Indication: DEPRESSION
     Route: 048
     Dates: start: 20160808, end: 20160813
  5. MIRTAZAPINE. [Interacting]
     Active Substance: MIRTAZAPINE
     Indication: DEPRESSION
     Route: 048
     Dates: start: 20160724, end: 20160827

REACTIONS (2)
  - Leukopenia [Recovered/Resolved]
  - Drug interaction [Unknown]

NARRATIVE: CASE EVENT DATE: 20160809
